FAERS Safety Report 5658586-5 (Version None)
Quarter: 2008Q1

REPORT INFORMATION
  Report Type: 
  Country: None (occurrence: None)
  Receive Date: 20080310
  Receipt Date: 20070515
  Transmission Date: 20080703
  Serious: No
  Sender: FDA-Public Use
  Company Number: US-BAYER-200710829BCC

PATIENT
  Age: 49 Year
  Sex: Male
  Weight: 118 kg

DRUGS (1)
  1. ALEVE [Suspect]
     Indication: ARTHRALGIA
     Dosage: UNIT DOSE: 220 MG
     Route: 048
     Dates: start: 20070221

REACTIONS (6)
  - ERYTHEMA [None]
  - GENITAL ERYTHEMA [None]
  - LIBIDO DECREASED [None]
  - NASAL DISCOMFORT [None]
  - PENILE OEDEMA [None]
  - PRURITUS GENITAL [None]
